FAERS Safety Report 4652731-6 (Version None)
Quarter: 2005Q2

REPORT INFORMATION
  Report Type: 
  Country: None (occurrence: None)
  Receive Date: 20050502
  Receipt Date: 20050418
  Transmission Date: 20051028
  Serious: No
  Sender: FDA-Public Use
  Company Number: 2005UW06012

PATIENT
  Age: 63 Year
  Sex: Male
  Weight: 83.9 kg

DRUGS (9)
  1. CRESTOR [Suspect]
     Indication: BLOOD CHOLESTEROL INCREASED
     Dosage: 10 MG PO
     Route: 048
  2. CRESTOR [Suspect]
     Indication: BLOOD CHOLESTEROL INCREASED
     Dosage: 5 MG PO
     Route: 048
  3. NIACIN [Suspect]
     Dosage: 500 MG
  4. NIACIN [Suspect]
     Dosage: 1500 MG
  5. NIACIN [Suspect]
     Dosage: 500 MG
  6. ASPIRIN [Concomitant]
  7. MULTI-VITAMINS [Concomitant]
  8. LUTEIN [Concomitant]
  9. FLAXSEED OIL [Concomitant]

REACTIONS (1)
  - HAEMORRHAGE [None]
